FAERS Safety Report 20661975 (Version 2)
Quarter: 2022Q2

REPORT INFORMATION
  Report Type: Report from Study
  Country: US (occurrence: None)
  Receive Date: 20220401
  Receipt Date: 20220516
  Transmission Date: 20220721
  Serious: Yes (Death)
  Sender: FDA-Public Use
  Company Number: 2022A130681

PATIENT
  Age: 29723 Day
  Sex: Male
  Weight: 88.7 kg

DRUGS (20)
  1. CALQUENCE [Suspect]
     Active Substance: ACALABRUTINIB
     Indication: Mantle cell lymphoma
     Route: 048
     Dates: start: 20180303, end: 20211001
  2. ACETAMINOPHEN [Concomitant]
     Active Substance: ACETAMINOPHEN
  3. ASPIRIN [Concomitant]
     Active Substance: ASPIRIN
  4. DEMEROL [Concomitant]
     Active Substance: MEPERIDINE HYDROCHLORIDE
  5. DIPHENHYDRAMINE [Concomitant]
     Active Substance: DIPHENHYDRAMINE
  6. DOCUSATE [Concomitant]
     Active Substance: DOCUSATE
  7. VITAMINS [Concomitant]
     Active Substance: VITAMINS
  8. ONDANSETRON [Concomitant]
     Active Substance: ONDANSETRON
  9. PERIDEX [Concomitant]
     Active Substance: CHLORHEXIDINE GLUCONATE
  10. HIGH DENSITY POLYETHYLENE [Concomitant]
     Active Substance: HIGH DENSITY POLYETHYLENE
  11. PREVIDENT [Concomitant]
     Active Substance: SODIUM FLUORIDE
  12. PROCHLORPERAZINE [Concomitant]
     Active Substance: PROCHLORPERAZINE
  13. RUXIENCE [Concomitant]
     Active Substance: RITUXIMAB-PVVR
  14. SENNA [Concomitant]
     Active Substance: SENNA LEAF\SENNOSIDES\SENNOSIDES A AND B
  15. SODIUM [Concomitant]
     Active Substance: SODIUM
  16. SOLU-CORTEF [Concomitant]
     Active Substance: HYDROCORTISONE SODIUM SUCCINATE
  17. TADALAFIL [Concomitant]
     Active Substance: TADALAFIL
  18. TRAMADOL [Concomitant]
     Active Substance: TRAMADOL
  19. VITAMIN D3 [Concomitant]
     Active Substance: CHOLECALCIFEROL
  20. ZOLPIDEM [Concomitant]
     Active Substance: ZOLPIDEM TARTRATE

REACTIONS (1)
  - Death [Fatal]

NARRATIVE: CASE EVENT DATE: 20220308
